FAERS Safety Report 17758822 (Version 1)
Quarter: 2020Q2

REPORT INFORMATION
  Report Type: Spontaneous
  Country: ES (occurrence: ES)
  Receive Date: 20200508
  Receipt Date: 20200508
  Transmission Date: 20200714
  Serious: Yes (Life-Threatening, Hospitalization, Other)
  Sender: FDA-Public Use
  Company Number: ES-SUN PHARMACEUTICAL INDUSTRIES LTD-2018RR-192827

PATIENT
  Age: 53 Year
  Sex: Female
  Weight: 67 kg

DRUGS (12)
  1. TADALAFIL. [Suspect]
     Active Substance: TADALAFIL
     Indication: PULMONARY ARTERIAL HYPERTENSION
     Dosage: 20 MG ONCE DAILY
     Route: 065
     Dates: start: 201801
  2. GLECAPREVIR/PIBRENTASVIR [Suspect]
     Active Substance: GLECAPREVIR\PIBRENTASVIR
     Indication: HEPATITIS C
     Dosage: UNK
     Route: 065
     Dates: start: 201801
  3. LOPINAVIR/RITONAVIR [Interacting]
     Active Substance: LOPINAVIR\RITONAVIR
     Indication: HIV INFECTION
     Dosage: 400/100 MG TWICE DAILY
     Route: 065
     Dates: start: 201801
  4. RALTEGRAVIR. [Interacting]
     Active Substance: RALTEGRAVIR
     Indication: HEPATITIS C
     Dosage: 400 MG TWICE DAILY
     Route: 065
     Dates: start: 201801
  5. COBICISTAT;DARUNAVIR [Suspect]
     Active Substance: COBICISTAT\DARUNAVIR ETHANOLATE
     Indication: HIV INFECTION
     Dosage: 800/150 MGCOBICISTAT/DARUNAVIR 150/800MG [DARUNAVIR/COBICISTAT] ONCE DAILY
     Route: 065
     Dates: start: 201804, end: 201809
  6. COBICISTAT;DARUNAVIR [Suspect]
     Active Substance: COBICISTAT\DARUNAVIR ETHANOLATE
     Indication: HEPATITIS C
     Dosage: 800/150 MG, QD ()
     Route: 048
     Dates: start: 20180501, end: 20181004
  7. BOSENTAN. [Suspect]
     Active Substance: BOSENTAN
     Indication: PULMONARY ARTERIAL HYPERTENSION
     Dosage: 62.5 MILLIGRAM, BID
     Route: 048
     Dates: start: 20180409, end: 20181019
  8. ISENTRESS [Concomitant]
     Active Substance: RALTEGRAVIR POTASSIUM
     Indication: HIV INFECTION
     Dosage: UNK
     Route: 048
     Dates: start: 20180122, end: 20181004
  9. BOSENTAN (2882A) [Suspect]
     Active Substance: BOSENTAN
     Indication: PULMONARY ARTERIAL HYPERTENSION
     Dosage: 125 MILLIGRAM, BID
     Route: 048
     Dates: start: 20180409, end: 20181008
  10. RILPIVIRINE [Suspect]
     Active Substance: RILPIVIRINE
     Indication: ANTIRETROVIRAL THERAPY
     Dosage: 25 MILLIGRAM, DAILY
     Route: 065
     Dates: start: 201801, end: 201804
  11. REZOLSTA 800 MG / 150 MG COMPRIMIDOS RECUBIERTOS CON PELICULA 30 CO [Suspect]
     Active Substance: COBICISTAT\DARUNAVIR ETHANOLATE
     Indication: HIV INFECTION
     Dosage: UNK
     Route: 048
     Dates: start: 20180501, end: 20181004
  12. TRACLEER [Suspect]
     Active Substance: BOSENTAN
     Indication: PULMONARY ARTERIAL HYPERTENSION
     Dosage: 62.5 MILLIGRAM, BID
     Route: 048
     Dates: start: 20180409, end: 20181019

REACTIONS (11)
  - Blood HIV RNA increased [Recovering/Resolving]
  - Drug interaction [Recovering/Resolving]
  - Respiratory failure [Recovering/Resolving]
  - Toxicity to various agents [Unknown]
  - Enzyme inhibition [Unknown]
  - Drug interaction [Recovered/Resolved]
  - Cardiac failure [Recovering/Resolving]
  - Drug resistance [Not Recovered/Not Resolved]
  - Cardiac failure congestive [Recovered/Resolved]
  - Virologic failure [Recovering/Resolving]
  - Fluid retention [Recovering/Resolving]

NARRATIVE: CASE EVENT DATE: 2018
